FAERS Safety Report 5338879-1 (Version None)
Quarter: 2007Q2

REPORT INFORMATION
  Report Type: 
  Country: None (occurrence: None)
  Receive Date: 20070404
  Receipt Date: 20070123
  Transmission Date: 20071010
  Serious: Yes (Other)
  Sender: FDA-Public Use
  Company Number: 070125-0000143

PATIENT
  Age: 11 Day
  Sex: Male
  Weight: 0.98 kg

DRUGS (2)
  1. INDOCIN I.V. [Suspect]
     Indication: PATENT DUCTUS ARTERIOSUS
     Dosage: 0.1 MG/ KG; QD; IV
     Route: 042
     Dates: start: 20070118, end: 20070120
  2. BROAD SPECTRUM ANTIBIOTICS [Concomitant]

REACTIONS (2)
  - DRUG INEFFECTIVE [None]
  - GASTROINTESTINAL PERFORATION [None]
